FAERS Safety Report 5150464-3 (Version None)
Quarter: 2006Q4

REPORT INFORMATION
  Report Type: 
  Country: None (occurrence: None)
  Receive Date: 20061114
  Receipt Date: 20061106
  Transmission Date: 20070319
  Serious: Yes (Death)
  Sender: FDA-Public Use
  Company Number: 2006AP05359

PATIENT
  Sex: Female

DRUGS (17)
  1. IRESSA [Suspect]
     Indication: LUNG ADENOCARCINOMA RECURRENT
     Route: 048
     Dates: start: 20060228, end: 20060325
  2. VASOLAN [Suspect]
     Indication: ARRHYTHMIA
     Route: 048
     Dates: start: 20060302, end: 20060304
  3. VASOLAN [Suspect]
     Route: 048
     Dates: start: 20060314, end: 20060327
  4. OXYCONTIN [Concomitant]
     Indication: CANCER PAIN
     Route: 048
     Dates: start: 20060203, end: 20060327
  5. AMOXAN [Concomitant]
     Indication: CANCER PAIN
     Route: 048
     Dates: start: 20060206, end: 20060326
  6. BLOPRESS [Concomitant]
     Indication: HYPERTENSION
     Route: 048
     Dates: start: 20060209, end: 20060309
  7. LANDSEN [Concomitant]
     Indication: CANCER PAIN
     Route: 048
     Dates: start: 20060210, end: 20060327
  8. NIFEDIPINE [Concomitant]
     Indication: HYPERTENSION
     Route: 048
     Dates: start: 20060213, end: 20060309
  9. SUNRYTHM [Concomitant]
     Indication: ARRHYTHMIA
     Route: 048
     Dates: start: 20060217, end: 20060309
  10. ASPIRIN [Concomitant]
     Indication: THROMBOSIS PROPHYLAXIS
     Route: 048
     Dates: start: 20060220, end: 20060327
  11. MEROPENEM [Concomitant]
     Indication: INFECTION
     Route: 041
     Dates: start: 20060222, end: 20060306
  12. LANSOPRAZOLE [Concomitant]
     Indication: PROPHYLAXIS AGAINST GASTROINTESTINAL ULCER
     Route: 048
     Dates: start: 20060227, end: 20060327
  13. UNKNOWN DRUG (DIGOXIN) [Concomitant]
     Route: 048
     Dates: start: 20060302
  14. DIGOSIN [Concomitant]
     Indication: ARRHYTHMIA
     Route: 048
     Dates: start: 20060304, end: 20060309
  15. NITRODERM [Concomitant]
     Dates: end: 20060309
  16. RADIOTHERAPY [Concomitant]
     Dosage: 40 GY TO TH12
     Dates: start: 20060207, end: 20060228
  17. RADIOTHERAPY [Concomitant]
     Dosage: 40 GY TO TH12
     Dates: start: 20060210, end: 20060303

REACTIONS (8)
  - BRADYARRHYTHMIA [None]
  - DRUG INEFFECTIVE [None]
  - HEART RATE INCREASED [None]
  - PERICARDIAL EFFUSION [None]
  - PLEURAL EFFUSION [None]
  - PULSE ABSENT [None]
  - RENAL IMPAIRMENT [None]
  - RESPIRATORY ARREST [None]
